FAERS Safety Report 7389804-3 (Version None)
Quarter: 2011Q1

REPORT INFORMATION
  Report Type: 
  Country: None (occurrence: None)
  Receive Date: 20110323
  Receipt Date: 20110315
  Transmission Date: 20110831
  Serious: Yes (Hospitalization)
  Sender: FDA-Public Use
  Company Number: 2011SP011838

PATIENT
  Age: 73 Year
  Sex: Male

DRUGS (1)
  1. ASMANEX TWISTHALER [Suspect]
     Indication: ASTHMA
     Dosage: 1 DF;BID;INH
     Route: 055
     Dates: start: 20080101

REACTIONS (1)
  - GASTROOESOPHAGEAL REFLUX DISEASE [None]
